FAERS Safety Report 18206539 (Version 1)
Quarter: 2020Q3

REPORT INFORMATION
  Report Type: Spontaneous
  Country: US (occurrence: US)
  Receive Date: 20200828
  Receipt Date: 20200828
  Transmission Date: 20201103
  Serious: No
  Sender: FDA-Public Use
  Company Number: US-BAUSCH-BL-2020-023170

PATIENT
  Sex: Female

DRUGS (1)
  1. LEVOBUNOLOL HYDROCHLORIDE OPHTHALMIC SOLUTION USP 0.5% [Suspect]
     Active Substance: LEVOBUNOLOL HYDROCHLORIDE
     Indication: GLAUCOMA
     Dosage: 1 DROP IN EACH EYE
     Route: 047

REACTIONS (5)
  - Visual impairment [Not Recovered/Not Resolved]
  - Eyelid margin crusting [Not Recovered/Not Resolved]
  - Product substitution issue [Unknown]
  - Headache [Not Recovered/Not Resolved]
  - Eye irritation [Not Recovered/Not Resolved]
